FAERS Safety Report 15458699 (Version 1)
Quarter: 2018Q4

REPORT INFORMATION
  Report Type: Spontaneous
  Country: US (occurrence: US)
  Receive Date: 20181001
  Receipt Date: 20181001
  Transmission Date: 20190204
  Serious: Yes (Death)
  Sender: FDA-Public Use
  Company Number: None

PATIENT
  Age: 89 Year
  Sex: Male

DRUGS (1)
  1. WARFARIN [Suspect]
     Active Substance: WARFARIN

REACTIONS (6)
  - Fall [None]
  - Cerebral haematoma [None]
  - Cardiac arrest [None]
  - Therapy cessation [None]
  - International normalised ratio decreased [None]
  - Head injury [None]

NARRATIVE: CASE EVENT DATE: 20180416
